FAERS Safety Report 8917395 (Version 1)
Quarter: 2012Q4

REPORT INFORMATION
  Report Type: 
  Country: US (occurrence: US)
  Receive Date: 20121120
  Receipt Date: 20121120
  Transmission Date: 20130627
  Serious: Yes (Disabling)
  Sender: FDA-Public Use
  Company Number: US-PFIZER INC-2012288174

PATIENT
  Age: 74 Year
  Sex: Female
  Weight: 92.06 kg

DRUGS (5)
  1. SUTENT [Suspect]
     Indication: RENAL CELL CARCINOMA
     Dosage: three capsules daily for seven days while on the therapy followed by 14 days off
     Route: 048
     Dates: start: 201204
  2. SYNTHROID [Concomitant]
     Indication: HYPERTHYROIDISM
     Dosage: UNK
  3. EVISTA [Concomitant]
     Indication: OSTEOPOROSIS
     Dosage: UNK
  4. VITAMIN D [Concomitant]
     Dosage: UNK
  5. VITAMIN B12 [Concomitant]
     Dosage: UNK

REACTIONS (1)
  - Deafness [Not Recovered/Not Resolved]
